FAERS Safety Report 25550107 (Version 1)
Quarter: 2025Q3

REPORT INFORMATION
  Report Type: Spontaneous
  Country: US (occurrence: US)
  Receive Date: 20250714
  Receipt Date: 20250714
  Transmission Date: 20251021
  Serious: No
  Sender: MERZ
  Company Number: US-Merz Pharmaceuticals GmbH-2025070000020

PATIENT

DRUGS (3)
  1. XEOMIN [Suspect]
     Active Substance: INCOBOTULINUMTOXINA
     Indication: Skin cosmetic procedure
     Dosage: 40 INTERNATIONAL UNIT
     Dates: start: 20250701, end: 20250701
  2. XEOMIN [Suspect]
     Active Substance: INCOBOTULINUMTOXINA
  3. POLYLACTIDE, L- [Concomitant]
     Active Substance: POLYLACTIDE, L-
     Indication: Skin cosmetic procedure
     Dates: start: 20250701, end: 20250701

REACTIONS (3)
  - Vomiting [Unknown]
  - Nausea [Unknown]
  - Rash [Unknown]

NARRATIVE: CASE EVENT DATE: 20250701
